FAERS Safety Report 5081086-0 (Version None)
Quarter: 2006Q3

REPORT INFORMATION
  Report Type: 
  Country: None (occurrence: None)
  Receive Date: 20060810
  Receipt Date: 20060731
  Transmission Date: 20061208
  Serious: Yes (Other)
  Sender: FDA-Public Use
  Company Number: A202520

PATIENT
  Age: 75 Year
  Sex: Male
  Weight: 93.441 kg

DRUGS (12)
  1. TIKOSYN [Suspect]
     Indication: ATRIAL FIBRILLATION
     Dosage: 250 MCG (2 IN 1 D), ORAL
     Route: 048
     Dates: start: 20011101, end: 20060101
  2. COREG [Concomitant]
  3. SYNTHROID [Concomitant]
  4. LASIX [Concomitant]
  5. LIPITOR [Concomitant]
  6. FOLGARD (FOLIC ACID, PYRIDOXINE, CYANOCOBALAMIN) [Concomitant]
  7. COSAMINE DS (ASCORBIC ACID, GLUCOSAMINE HYDROCHLORIDE, CHONDROITIN SUL [Concomitant]
  8. ASCORBIC ACID [Concomitant]
  9. VITAMIN E [Concomitant]
  10. POTASSIUM CHLORIDE [Concomitant]
  11. COUMADIN [Concomitant]
  12. ZAROXOLYN [Concomitant]

REACTIONS (8)
  - ALCOHOL USE [None]
  - ATRIAL FIBRILLATION [None]
  - COUGH [None]
  - HAEMORRHAGE [None]
  - LIMB INJURY [None]
  - NASOPHARYNGITIS [None]
  - PULMONARY OEDEMA [None]
  - RED BLOOD CELL COUNT DECREASED [None]
